FAERS Safety Report 7544398-4 (Version None)
Quarter: 2011Q2

REPORT INFORMATION
  Report Type: 
  Country: None (occurrence: None)
  Receive Date: 20110613
  Receipt Date: 20080814
  Transmission Date: 20111010
  Serious: Yes (Other)
  Sender: FDA-Public Use
  Company Number: PHHY2008CA18127

PATIENT

DRUGS (9)
  1. INSULIN [Concomitant]
     Dosage: UNK
  2. CARVEDILOL [Concomitant]
     Dosage: UNK
  3. CLOBAZAM [Concomitant]
     Dosage: UNK
  4. VALPROIC ACID [Concomitant]
     Dosage: UNK
  5. ENALAPRIL MALEATE [Concomitant]
     Dosage: UNK
  6. CALCIUM CARBONATE [Concomitant]
     Dosage: UNK
  7. VITAMIN D [Concomitant]
     Dosage: UNK
  8. PAMIDRONATE DISODIUM [Concomitant]
     Dosage: UNK
  9. DESFERAL [Suspect]
     Indication: IRON OVERLOAD
     Dosage: 16 G FOR WEEK

REACTIONS (1)
  - CARDIAC SIDEROSIS [None]
